FAERS Safety Report 16975413 (Version 1)
Quarter: 2019Q4

REPORT INFORMATION
  Report Type: Spontaneous
  Country: JP (occurrence: JP)
  Receive Date: 20191030
  Receipt Date: 20191030
  Transmission Date: 20200122
  Serious: Yes (Other)
  Sender: FDA-Public Use
  Company Number: JP-SA-2019SA298304

PATIENT
  Age: 41 Year
  Sex: Female
  Weight: 45 kg

DRUGS (1)
  1. MYSLEE [Suspect]
     Active Substance: ZOLPIDEM TARTRATE
     Indication: PRODUCT USED FOR UNKNOWN INDICATION
     Dosage: 70 MG, QD
     Route: 048
     Dates: start: 20191022

REACTIONS (5)
  - Somnolence [Unknown]
  - Suicide attempt [Unknown]
  - Agitation [Unknown]
  - Dizziness [Unknown]
  - Intentional overdose [Unknown]

NARRATIVE: CASE EVENT DATE: 20191022
